FAERS Safety Report 23665862 (Version 1)
Quarter: 2024Q1

REPORT INFORMATION
  Report Type: Spontaneous
  Country: CN (occurrence: CN)
  Receive Date: 20240323
  Receipt Date: 20240323
  Transmission Date: 20240410
  Serious: Yes (Hospitalization, Other)
  Sender: FDA-Public Use
  Company Number: None

PATIENT
  Age: 31 Year
  Sex: Female
  Weight: 64 kg

DRUGS (3)
  1. CYCLOPHOSPHAMIDE [Suspect]
     Active Substance: CYCLOPHOSPHAMIDE
     Indication: Drug therapy
     Dosage: 970 MG, ONE TIME IN ONE DAY, D1, Q3W, FIRST CYCLE OF CHEMOTHERAPY COMBINED WITH TARGETED THERAPY
     Route: 041
     Dates: start: 20240113, end: 20240113
  2. DOCETAXEL [Suspect]
     Active Substance: DOCETAXEL\DOCETAXEL ANHYDROUS
     Indication: Drug therapy
     Dosage: 120 MG, ONE TIME IN ONE DAY, D1, Q3W, FIRST CYCLE OF CHEMOTHERAPY COMBINED WITH TARGETED THERAPY
     Route: 041
     Dates: start: 20240113, end: 20240113
  3. TRASTUZUMAB [Suspect]
     Active Substance: TRASTUZUMAB
     Dosage: 488 MG, D1, Q3W, FIRST CYCLE OF CHEMOTHERAPY COMBINED WITH TARGETED THERAPY
     Route: 065
     Dates: start: 20240113, end: 20240113

REACTIONS (3)
  - Breast cancer [Unknown]
  - Myelosuppression [Recovered/Resolved]
  - Granulocyte count decreased [Recovered/Resolved]

NARRATIVE: CASE EVENT DATE: 20240122
